FAERS Safety Report 7490855-9 (Version None)
Quarter: 2011Q2

REPORT INFORMATION
  Report Type: 
  Country: None (occurrence: None)
  Receive Date: 20110517
  Receipt Date: 20110517
  Transmission Date: 20111010
  Serious: No
  Sender: FDA-Public Use
  Company Number: None

PATIENT
  Age: 44 Year
  Sex: Female
  Weight: 81.6475 kg

DRUGS (11)
  1. SIMVASTATIN [Concomitant]
  2. BUPROPION HCL [Concomitant]
  3. TYSABRI [Suspect]
     Indication: MULTIPLE SCLEROSIS
     Dosage: 300MG Q MONTH IV
     Route: 042
     Dates: start: 20070101, end: 20100713
  4. NAMENDA [Concomitant]
  5. ADDERALL XR 10 [Concomitant]
  6. LEXAPRO [Concomitant]
  7. PROVIGIL [Concomitant]
  8. AMPYRA [Concomitant]
  9. ENABLEX [Concomitant]
  10. VITAMIN D [Concomitant]
  11. BACLOFEN [Concomitant]

REACTIONS (2)
  - HEPATITIS [None]
  - NO THERAPEUTIC RESPONSE [None]
